FAERS Safety Report 4519154-1 (Version None)
Quarter: 2004Q4

REPORT INFORMATION
  Report Type: 
  Country: None (occurrence: None)
  Receive Date: 20041201
  Receipt Date: 20041116
  Transmission Date: 20050328
  Serious: Yes (Hospitalization)
  Sender: FDA-Public Use
  Company Number: 2004AP05929

PATIENT
  Age: 28 Year
  Sex: Female

DRUGS (6)
  1. SELOKEN [Suspect]
     Indication: HYPERTENSION
     Dosage: 60 MG DAILY PO
     Route: 048
     Dates: start: 20041015, end: 20041106
  2. SELOKEN [Suspect]
     Indication: TACHYARRHYTHMIA
     Dosage: 60 MG DAILY PO
     Route: 048
     Dates: start: 20041015, end: 20041106
  3. INDERAL [Suspect]
     Indication: HYPERTENSION
     Dosage: 60 MG DAILY PO
     Route: 048
     Dates: start: 20041107, end: 20041115
  4. INDERAL [Suspect]
     Indication: TACHYARRHYTHMIA
     Dosage: 60 MG DAILY PO
     Route: 048
     Dates: start: 20041107, end: 20041115
  5. METHIMAZOLE [Suspect]
     Indication: HYPERTHYROIDISM
     Dosage: 80 MG DAILY PO
     Route: 048
     Dates: start: 20041015, end: 20041106
  6. MEROPEN [Suspect]
     Dosage: 1 G DAILY IV
     Route: 042
     Dates: start: 20041107, end: 20041116

REACTIONS (2)
  - AGRANULOCYTOSIS [None]
  - PANCYTOPENIA [None]
